FAERS Safety Report 14384833 (Version 2)
Quarter: 2018Q1

REPORT INFORMATION
  Report Type: Spontaneous
  Country: JP (occurrence: JP)
  Receive Date: 20180115
  Receipt Date: 20180117
  Transmission Date: 20180509
  Serious: Yes (Other)
  Sender: FDA-Public Use
  Company Number: JP-JNJFOC-20180115147

PATIENT
  Age: 75 Year
  Sex: Male

DRUGS (8)
  1. PREDONINE [Concomitant]
     Active Substance: PREDNISOLONE
     Route: 048
     Dates: start: 2015
  2. BONALON [Concomitant]
     Active Substance: ALENDRONATE SODIUM
     Route: 048
  3. PREDONINE [Concomitant]
     Active Substance: PREDNISOLONE
     Route: 048
  4. GASTER [Concomitant]
     Active Substance: FAMOTIDINE
     Route: 048
  5. BETAMETHASONE. [Concomitant]
     Active Substance: BETAMETHASONE
     Route: 048
  6. STELARA [Suspect]
     Active Substance: USTEKINUMAB
     Indication: PSORIASIS
     Route: 058
     Dates: start: 201610
  7. NICOTINAMIDE [Concomitant]
     Active Substance: NIACINAMIDE
     Route: 048
  8. DOVOBET [Concomitant]
     Active Substance: BETAMETHASONE\CALCIPOTRIENE
     Route: 061

REACTIONS (2)
  - Pancreatic carcinoma [Unknown]
  - Renal cancer [Unknown]

NARRATIVE: CASE EVENT DATE: 201712
